FAERS Safety Report 25430709 (Version 1)
Quarter: 2025Q2

REPORT INFORMATION
  Report Type: Spontaneous
  Country: CH (occurrence: CH)
  Receive Date: 20250612
  Receipt Date: 20250612
  Transmission Date: 20250716
  Serious: Yes (Life-Threatening, Hospitalization, Other)
  Sender: MERCK SHARP & DOHME LLC
  Company Number: None

PATIENT
  Age: 48 Year
  Sex: Female
  Weight: 70 kg

DRUGS (4)
  1. PEMBROLIZUMAB [Suspect]
     Active Substance: PEMBROLIZUMAB
     Route: 040
     Dates: start: 20241213, end: 20250328
  2. CAPECITABINE [Concomitant]
     Active Substance: CAPECITABINE
     Route: 048
     Dates: start: 20241213, end: 202502
  3. OXALIPLATIN [Concomitant]
     Active Substance: OXALIPLATIN
     Route: 040
     Dates: start: 20241213, end: 202502
  4. TRASTUZUMAB [Concomitant]
     Active Substance: TRASTUZUMAB
     Dosage: 1 DOSAGE FORM CONTAINS 390-550 MG OF TRASTUZUMAB, NO PRECISE DOSAGE SCHEDULE GIVEN.
     Route: 040
     Dates: start: 20241213

REACTIONS (3)
  - Myocarditis [Not Recovered/Not Resolved]
  - Ischaemic stroke [Not Recovered/Not Resolved]
  - Endocarditis noninfective [Not Recovered/Not Resolved]

NARRATIVE: CASE EVENT DATE: 20250401
